FAERS Safety Report 6679881-7 (Version None)
Quarter: 2010Q2

REPORT INFORMATION
  Report Type: 
  Country: None (occurrence: None)
  Receive Date: 20100413
  Receipt Date: 20100408
  Transmission Date: 20101027
  Serious: Yes (Hospitalization, Other)
  Sender: FDA-Public Use
  Company Number: US-ELI_LILLY_AND_COMPANY-US201004002542

PATIENT
  Sex: Male

DRUGS (4)
  1. HUMALOG [Suspect]
     Indication: TYPE 1 DIABETES MELLITUS
     Dosage: 12 U, AS NEEDED
     Dates: start: 20020101
  2. HUMALOG [Suspect]
     Dosage: 12 U, AS NEEDED
  3. LANTUS [Concomitant]
  4. VITAMINS [Concomitant]

REACTIONS (4)
  - DIABETIC COMA [None]
  - DRUG DOSE OMISSION [None]
  - RENAL DISORDER [None]
  - SOMNOLENCE [None]
